FAERS Safety Report 17820107 (Version 2)
Quarter: 2025Q3

REPORT INFORMATION
  Report Type: Report from Study
  Country: EU (occurrence: EU)
  Receive Date: 20200525
  Receipt Date: 20250703
  Transmission Date: 20251020
  Serious: Yes (Other)
  Sender: AUROBINDO
  Company Number: EU-GRUNENTHAL-2020-102949

PATIENT
  Age: 66 Year
  Sex: Male

DRUGS (3)
  1. IBUPROFEN [Suspect]
     Active Substance: IBUPROFEN
     Indication: Product used for unknown indication
     Route: 065
  2. TRAMADOL HYDROCHLORIDE [Interacting]
     Active Substance: TRAMADOL HYDROCHLORIDE
     Indication: Product used for unknown indication
     Route: 065
  3. CANNABIS SATIVA FLOWERING TOP [Interacting]
     Active Substance: CANNABIS SATIVA FLOWERING TOP
     Indication: Neuralgia
     Route: 048

REACTIONS (4)
  - Balance disorder [Recovered/Resolved]
  - Presyncope [Recovered/Resolved]
  - Drug interaction [Unknown]
  - Bradyarrhythmia [Recovered/Resolved]
